FAERS Safety Report 5584734-1 (Version None)
Quarter: 2008Q1

REPORT INFORMATION
  Report Type: 
  Country: None (occurrence: None)
  Receive Date: 20080108
  Receipt Date: 20071227
  Transmission Date: 20080703
  Serious: Yes (Other)
  Sender: FDA-Public Use
  Company Number: US-PFIZER INC-2008000284

PATIENT
  Sex: Male
  Weight: 159.09 kg

DRUGS (8)
  1. CHANTIX [Suspect]
     Indication: SMOKING CESSATION THERAPY
     Route: 048
     Dates: start: 20071123, end: 20071227
  2. LOTREL [Concomitant]
  3. FUROSEMIDE [Concomitant]
  4. ADVAIR DISKUS 100/50 [Concomitant]
  5. SPIRIVA [Concomitant]
     Route: 055
  6. METOCLOPRAMIDE [Concomitant]
  7. OXYGEN [Concomitant]
  8. ALL OTHER THERAPEUTIC PRODUCTS [Concomitant]

REACTIONS (2)
  - NERVOUSNESS [None]
  - SUICIDAL IDEATION [None]
